FAERS Safety Report 5377831-7 (Version None)
Quarter: 2007Q3

REPORT INFORMATION
  Report Type: 
  Country: None (occurrence: None)
  Receive Date: 20070703
  Receipt Date: 20070625
  Transmission Date: 20080115
  Serious: Yes (Hospitalization)
  Sender: FDA-Public Use
  Company Number: FR-PFIZER INC-2007052886

PATIENT
  Age: 48 Year
  Sex: Male
  Weight: 75 kg

DRUGS (6)
  1. CHAMPIX [Suspect]
     Indication: TOBACCO ABUSE
     Route: 048
     Dates: start: 20070221, end: 20070321
  2. ALL OTHER THERAPEUTIC PRODUCTS [Concomitant]
     Route: 030
     Dates: start: 20070225, end: 20070225
  3. PIROXICAM [Concomitant]
     Route: 048
     Dates: start: 20070310, end: 20070310
  4. ALL OTHER THERAPEUTIC PRODUCTS [Concomitant]
  5. CLONAZEPAM [Concomitant]
     Route: 048
  6. MORPHINE [Concomitant]
     Route: 048

REACTIONS (2)
  - CONDITION AGGRAVATED [None]
  - HEPATITIS TOXIC [None]
